FAERS Safety Report 23986162 (Version 3)
Quarter: 2024Q3

REPORT INFORMATION
  Report Type: Spontaneous
  Country: US (occurrence: US)
  Receive Date: 20240618
  Receipt Date: 20240710
  Transmission Date: 20241017
  Serious: No
  Sender: PFIZER
  Company Number: US-PFIZER INC-202400192288

PATIENT
  Age: 24 Year
  Sex: Female
  Weight: 75.737 kg

DRUGS (1)
  1. DEPO-PROVERA [Suspect]
     Active Substance: MEDROXYPROGESTERONE ACETATE
     Indication: Contraception
     Dosage: 104 MG, EVERY 3 MONTHS
     Route: 058

REACTIONS (4)
  - Wrong technique in device usage process [Unknown]
  - Device mechanical issue [Unknown]
  - Needle issue [Unknown]
  - Product administration error [Unknown]
